FAERS Safety Report 4463262-0 (Version None)
Quarter: 2004Q3

REPORT INFORMATION
  Report Type: 
  Country: None (occurrence: None)
  Receive Date: 20040930
  Receipt Date: 20040920
  Transmission Date: 20050211
  Serious: Yes (Hospitalization)
  Sender: FDA-Public Use
  Company Number: FR-GLAXOSMITHKLINE-B0346137A

PATIENT
  Age: 84 Year
  Sex: Female

DRUGS (3)
  1. AUGMENTIN [Suspect]
     Indication: ILL-DEFINED DISORDER
     Dosage: 1G THREE TIMES PER DAY
     Route: 048
     Dates: start: 20030716, end: 20030718
  2. DUPHALAC [Concomitant]
     Route: 048
  3. TRANSIPEG [Concomitant]
     Route: 048

REACTIONS (4)
  - ABDOMINAL PAIN [None]
  - DEHYDRATION [None]
  - HYPOKALAEMIA [None]
  - HYPONATRAEMIA [None]
